FAERS Safety Report 7384084-7 (Version None)
Quarter: 2011Q1

REPORT INFORMATION
  Report Type: 
  Country: None (occurrence: None)
  Receive Date: 20110330
  Receipt Date: 20110322
  Transmission Date: 20110831
  Serious: Yes (Death, Hospitalization)
  Sender: FDA-Public Use
  Company Number: A0871927A

PATIENT
  Age: 69 Year
  Sex: Female

DRUGS (8)
  1. ADVAIR DISKUS 100/50 [Concomitant]
  2. METHYLPREDNISOLONE [Concomitant]
  3. AVANDIA [Suspect]
     Dosage: 2MG TWICE PER DAY
     Route: 048
     Dates: end: 20061201
  4. ALBUTEROL [Concomitant]
  5. SINGULAIR [Concomitant]
  6. WARFARIN [Concomitant]
  7. PROTONIX [Concomitant]
  8. MONOPRIL [Concomitant]

REACTIONS (7)
  - INTESTINAL ISCHAEMIA [None]
  - CARDIAC FAILURE [None]
  - CARDIOMYOPATHY [None]
  - ARTERIOSCLEROSIS CORONARY ARTERY [None]
  - INTESTINAL INFARCTION [None]
  - MYOCARDIAL INFARCTION [None]
  - CHRONIC OBSTRUCTIVE PULMONARY DISEASE [None]
